FAERS Safety Report 12614001 (Version 1)
Quarter: 2016Q3

REPORT INFORMATION
  Report Type: Spontaneous
  Country: US (occurrence: None)
  Receive Date: 20160801
  Receipt Date: 20160801
  Transmission Date: 20161109
  Serious: Yes (Hospitalization)
  Sender: FDA-Public Use
  Company Number: None

PATIENT
  Age: 48 Year
  Sex: Female
  Weight: 77.9 kg

DRUGS (1)
  1. GEMCITABINE HYDROCHLORIDE. [Suspect]
     Active Substance: GEMCITABINE HYDROCHLORIDE
     Dates: end: 20160506

REACTIONS (5)
  - Electrocardiogram T wave inversion [None]
  - Troponin increased [None]
  - Malaise [None]
  - Chest pain [None]
  - Sinus tachycardia [None]

NARRATIVE: CASE EVENT DATE: 20160510
